APPROVED DRUG PRODUCT: SANSAC
Active Ingredient: ERYTHROMYCIN
Strength: 2%
Dosage Form/Route: SOLUTION;TOPICAL
Application: A062522 | Product #001
Applicant: DOW PHARMACEUTICAL SCIENCES
Approved: Jan 24, 1985 | RLD: No | RS: No | Type: DISCN